FAERS Safety Report 14607766 (Version 9)
Quarter: 2019Q1

REPORT INFORMATION
  Report Type: Report from Study
  Country: DE (occurrence: DE)
  Receive Date: 20180307
  Receipt Date: 20190305
  Transmission Date: 20190417
  Serious: Yes (Hospitalization, Other)
  Sender: FDA-Public Use
  Company Number: DE-PFIZER INC-2018088790

PATIENT
  Age: 58 Year
  Sex: Female

DRUGS (30)
  1. NO SUBJECT DRUG [Suspect]
     Active Substance: UNSPECIFIED INGREDIENT
     Dosage: NO DOSE GIVEN
  2. HUMIRA [Suspect]
     Active Substance: ADALIMUMAB
     Indication: RHEUMATOID ARTHRITIS
     Dosage: 40 MG, UNK
     Route: 058
     Dates: start: 201409, end: 201501
  3. RITUXIMAB. [Suspect]
     Active Substance: RITUXIMAB
     Dosage: 1000 MG, UNK
     Dates: start: 201605
  4. ANASTROZOL [Concomitant]
     Active Substance: ANASTROZOLE
     Dosage: 1 MG, UNK
  5. PREDNISOLONE. [Concomitant]
     Active Substance: PREDNISOLONE
     Dosage: 20 MG, UNK
  6. LEFLUNOMIDE. [Concomitant]
     Active Substance: LEFLUNOMIDE
     Dosage: 15 MG, UNK
  7. HYDROXYCHLOROQUINE [Concomitant]
     Active Substance: HYDROXYCHLOROQUINE
     Dosage: UNK
     Dates: start: 201709
  8. SULFASALAZINE. [Suspect]
     Active Substance: SULFASALAZINE
     Dosage: 3000 MG, UNK
     Route: 065
     Dates: start: 2018
  9. CYANOCOBALAMIN W/FOLIC ACID [Suspect]
     Active Substance: CYANOCOBALAMIN\FOLIC ACID
     Dosage: UNK
  10. COTRIMOXAZOLE [Concomitant]
     Active Substance: SULFAMETHOXAZOLE\TRIMETHOPRIM
     Dosage: 960 MG, UNK
  11. SULFASALAZINE. [Suspect]
     Active Substance: SULFASALAZINE
     Dosage: 2000 MG, UNK
     Route: 065
     Dates: start: 201709
  12. HYDROXYCHLOROQUINE [Suspect]
     Active Substance: HYDROXYCHLOROQUINE
     Dosage: 400 MG, UNK
     Route: 065
     Dates: start: 201709
  13. LEFLUNOMIDE. [Suspect]
     Active Substance: LEFLUNOMIDE
     Indication: RHEUMATOID ARTHRITIS
     Dosage: 15 MG, UNK
     Route: 065
     Dates: start: 2017, end: 201706
  14. MABTHERA [Suspect]
     Active Substance: RITUXIMAB
     Indication: RHEUMATOID ARTHRITIS
     Dosage: 1000 MG, UNK
     Route: 042
     Dates: start: 201605, end: 201605
  15. MABTHERA [Suspect]
     Active Substance: RITUXIMAB
     Dosage: 1000 MG, UNK
     Route: 042
     Dates: start: 201610
  16. RITUXIMAB. [Suspect]
     Active Substance: RITUXIMAB
     Dosage: 1000 MG, UNK
     Route: 042
     Dates: start: 201703
  17. QUENSYL [Suspect]
     Active Substance: HYDROXYCHLOROQUINE
     Dosage: 400 MG, GIVEN 2017,2018
     Dates: start: 2018
  18. METHOTREXATE SODIUM. [Suspect]
     Active Substance: METHOTREXATE SODIUM
     Indication: RHEUMATOID ARTHRITIS
     Dosage: 25 MG, UNK
     Route: 065
     Dates: start: 2015, end: 201706
  19. METHOTREXATE SODIUM. [Suspect]
     Active Substance: METHOTREXATE SODIUM
     Dosage: UNK
     Route: 065
     Dates: start: 2017
  20. MABTHERA [Suspect]
     Active Substance: RITUXIMAB
     Dosage: 1000 MG, UNK
     Route: 042
     Dates: start: 201703
  21. RITUXIMAB. [Suspect]
     Active Substance: RITUXIMAB
     Dosage: 1000 MG, UNK
     Route: 042
     Dates: start: 201610
  22. LEFLUNOMIDE. [Suspect]
     Active Substance: LEFLUNOMIDE
     Dosage: 15 MG, UNK
     Route: 065
     Dates: end: 2017
  23. MTX SUPPORT [Suspect]
     Active Substance: CYANOCOBALAMIN\FOLIC ACID
     Dosage: UNK
  24. QUENSYL [Suspect]
     Active Substance: HYDROXYCHLOROQUINE
     Dosage: 400 MG, GIVEN 2017,2018
     Dates: start: 2017
  25. CELECOXIB. [Concomitant]
     Active Substance: CELECOXIB
     Dosage: 200 MG, UNK
  26. FOLINIC ACID [Concomitant]
     Active Substance: LEUCOVORIN
     Dosage: 5 MG, UNK
  27. TAPENTADOL [Concomitant]
     Active Substance: TAPENTADOL
     Dosage: 50 MG, UNK
  28. RITUXIMAB. [Suspect]
     Active Substance: RITUXIMAB
     Dosage: 1000 MG, UNK
     Route: 042
  29. PANTOZOL [Concomitant]
     Active Substance: PANTOPRAZOLE SODIUM
     Dosage: 20 MG, UNK
  30. COLECALCIFEROL [Concomitant]
     Active Substance: CHOLECALCIFEROL
     Dosage: 1000 IU, UNK

REACTIONS (16)
  - Osteopenia [Unknown]
  - Deep vein thrombosis [Unknown]
  - Vitamin D deficiency [Unknown]
  - Mucosal inflammation [Unknown]
  - Spinal osteoarthritis [Unknown]
  - Rotator cuff syndrome [Unknown]
  - Foot fracture [Unknown]
  - Hypogammaglobulinaemia [Unknown]
  - Radiculopathy [Unknown]
  - Nerve root compression [Unknown]
  - Stomatitis [Recovered/Resolved]
  - Immunoglobulins decreased [Unknown]
  - Stenosis [Unknown]
  - Breast cancer [Unknown]
  - Intervertebral disc protrusion [Unknown]
  - Bacteriuria [Unknown]

NARRATIVE: CASE EVENT DATE: 201501
